FAERS Safety Report 16982406 (Version 2)
Quarter: 2019Q4

REPORT INFORMATION
  Report Type: Report from Study
  Country: EG (occurrence: EG)
  Receive Date: 20191101
  Receipt Date: 20191121
  Transmission Date: 20200122
  Serious: Yes (Other)
  Sender: FDA-Public Use
  Company Number: NVSC2019EG019023

PATIENT
  Age: 40 Year
  Sex: Female

DRUGS (11)
  1. KISQALI [Suspect]
     Active Substance: RIBOCICLIB
     Indication: BREAST CANCER METASTATIC
     Dosage: 600 MG, QD
     Route: 048
     Dates: start: 20190723
  2. KISQALI [Suspect]
     Active Substance: RIBOCICLIB
     Indication: METASTASES TO BONE
  3. SOLUPRED [Concomitant]
     Dosage: 1 DF, QW
     Route: 065
  4. OSTEOCARE [Concomitant]
     Active Substance: CALCIUM\CHOLECALCIFEROL\MAGNESIUM\ZINC
     Indication: PRODUCT USED FOR UNKNOWN INDICATION
     Dosage: 1 DF, QD
     Route: 065
     Dates: start: 2017
  5. NEXIUM [Concomitant]
     Active Substance: ESOMEPRAZOLE MAGNESIUM
     Indication: PRODUCT USED FOR UNKNOWN INDICATION
     Dosage: 1 DF OF 40, QD, AT THE MORNING
     Route: 065
  6. CENTRUM [Concomitant]
     Active Substance: VITAMINS
     Indication: PRODUCT USED FOR UNKNOWN INDICATION
     Dosage: 1 DF, QD
     Route: 065
     Dates: start: 2017
  7. EMEX [Concomitant]
     Indication: PRODUCT USED FOR UNKNOWN INDICATION
     Dosage: UNK, PRN (WHEN REQUIRED FOR MAX 2 OR 3 TIMES/DAY)
     Route: 065
  8. SOLUPRED [Concomitant]
     Indication: PRODUCT USED FOR UNKNOWN INDICATION
     Dosage: 3 TIMES/DAY FOR WEEK
     Route: 065
  9. KISQALI [Suspect]
     Active Substance: RIBOCICLIB
     Indication: METASTASES TO LIVER
  10. KISQALI [Suspect]
     Active Substance: RIBOCICLIB
     Indication: METASTASES TO LUNG
     Dosage: 400 MG, QD
     Route: 048
  11. SOLUPRED [Concomitant]
     Dosage: 2 DF, QW
     Route: 065

REACTIONS (3)
  - Neutrophil count decreased [Recovering/Resolving]
  - Immunodeficiency [Recovering/Resolving]
  - Urticaria [Not Recovered/Not Resolved]

NARRATIVE: CASE EVENT DATE: 201910
